FAERS Safety Report 6397950-6 (Version None)
Quarter: 2009Q4

REPORT INFORMATION
  Report Type: 
  Country: None (occurrence: None)
  Receive Date: 20091006
  Receipt Date: 20090921
  Transmission Date: 20100525
  Serious: Yes (Hospitalization)
  Sender: FDA-Public Use
  Company Number: 2009002147

PATIENT
  Age: 66 Year
  Sex: Male
  Weight: 87.5 kg

DRUGS (10)
  1. ERLOTINIB HYDROCHLORIDE [Suspect]
     Indication: RENAL CELL CARCINOMA
     Dosage: 100 MG, QD, ORAL
     Route: 048
     Dates: start: 20071002, end: 20080205
  2. SUNITINIB MALATE [Suspect]
     Indication: RENAL CELL CARCINOMA
     Dosage: 25 MG, QD, ORAL
     Route: 048
     Dates: start: 20071002, end: 20080205
  3. ATENOLOL [Concomitant]
  4. ALLOPURINOL [Concomitant]
  5. BENICAR [Concomitant]
  6. ALLEGRA [Concomitant]
  7. VITAMIN B12 [Concomitant]
  8. PREVACID [Concomitant]
  9. HYDROCHLOROTHIAZIDE [Concomitant]
  10. FERROUS SULFATE TAB [Concomitant]

REACTIONS (2)
  - ANAEMIA [None]
  - HYPONATRAEMIA [None]
